FAERS Safety Report 24553078 (Version 1)
Quarter: 2024Q4

REPORT INFORMATION
  Report Type: Spontaneous
  Country: BR (occurrence: BR)
  Receive Date: 20241028
  Receipt Date: 20241028
  Transmission Date: 20250114
  Serious: Yes (Hospitalization, Disabling)
  Sender: JOHNSON AND JOHNSON
  Company Number: BR-JNJFOC-20241055353

PATIENT
  Sex: Male

DRUGS (5)
  1. BOSENTAN [Suspect]
     Active Substance: BOSENTAN
     Indication: Pulmonary hypertension
     Route: 048
  2. BOSENTAN [Suspect]
     Active Substance: BOSENTAN
     Indication: Systemic scleroderma
  3. BOSENTAN [Suspect]
     Active Substance: BOSENTAN
     Indication: Raynaud^s phenomenon
  4. CYCLOPHOSPHAMIDE [Suspect]
     Active Substance: CYCLOPHOSPHAMIDE
     Indication: Product used for unknown indication
     Route: 042
  5. AZATHIOPRINE [Concomitant]
     Active Substance: AZATHIOPRINE

REACTIONS (2)
  - Extremity necrosis [Unknown]
  - Malaise [Unknown]
